FAERS Safety Report 7396574-1 (Version None)
Quarter: 2011Q2

REPORT INFORMATION
  Report Type: 
  Country: None (occurrence: None)
  Receive Date: 20110406
  Receipt Date: 20110322
  Transmission Date: 20111010
  Serious: Yes (Other)
  Sender: FDA-Public Use
  Company Number: PHHY2011JP24349

PATIENT
  Sex: Male

DRUGS (11)
  1. AFINITOR [Suspect]
     Dosage: 5 MG, QD
     Dates: start: 20110102
  2. ADAPTINOL [Concomitant]
     Dosage: 100 MG, UNK
     Route: 048
  3. AFINITOR [Suspect]
     Indication: METASTATIC RENAL CELL CARCINOMA
     Dosage: 10 MG, QD
     Route: 048
     Dates: start: 20101207, end: 20101216
  4. SUNITINIB MALATE [Concomitant]
     Indication: METASTATIC RENAL CELL CARCINOMA
     Dosage: 25 MG, UNK
     Route: 048
     Dates: start: 20100804, end: 20101129
  5. CARBAZOCHROME SALICYLATE [Concomitant]
     Indication: METASTATIC RENAL CELL CARCINOMA
     Dosage: 90 MG, UNK
     Route: 048
     Dates: start: 20100706
  6. URALYT-U [Concomitant]
     Dosage: 2 G, UNK
     Route: 048
  7. TRANEXAMIC ACID [Concomitant]
     Indication: METASTATIC RENAL CELL CARCINOMA
     Dosage: 750 MG, UNK
     Dates: start: 20100706
  8. SORAFENIB TOSILATE [Concomitant]
     Indication: METASTATIC RENAL CELL CARCINOMA
     Dosage: 800 MG, UNK
     Dates: start: 20100408, end: 20100803
  9. NORVASC [Concomitant]
     Dosage: 5 MG, UNK
     Dates: start: 20100413
  10. URIEF [Concomitant]
     Dosage: 4 MG, UNK
     Route: 048
  11. THYRADIN S [Concomitant]
     Indication: PROPHYLAXIS
     Dosage: 25 UG, UNK
     Route: 048

REACTIONS (1)
  - GENERALISED OEDEMA [None]
